FAERS Safety Report 4433433-8 (Version None)
Quarter: 2004Q3

REPORT INFORMATION
  Report Type: 
  Country: None (occurrence: None)
  Receive Date: 20040826
  Receipt Date: 20040819
  Transmission Date: 20050211
  Serious: Yes (Other)
  Sender: FDA-Public Use
  Company Number: PHNU2004DE02936

PATIENT
  Sex: Male
  Weight: 92 kg

DRUGS (1)
  1. DIOVAN [Suspect]
     Indication: HYPERTENSION
     Dosage: 160 MG/D
     Route: 048
     Dates: start: 20040101, end: 20040601

REACTIONS (13)
  - ARTHRALGIA [None]
  - ASTHENIA [None]
  - AUTOIMMUNE DISORDER [None]
  - DEPRESSION [None]
  - FATIGUE [None]
  - GAIT DISTURBANCE [None]
  - GINGIVAL HYPERPLASIA [None]
  - HEADACHE [None]
  - HYPERHIDROSIS [None]
  - MYALGIA [None]
  - OEDEMA [None]
  - SINUSITIS [None]
  - SKIN DISORDER [None]
